FAERS Safety Report 8204892-X (Version None)
Quarter: 2012Q1

REPORT INFORMATION
  Report Type: 
  Country: None (occurrence: None)
  Receive Date: 20120313
  Receipt Date: 20120305
  Transmission Date: 20120608
  Serious: Yes (Hospitalization)
  Sender: FDA-Public Use
  Company Number: DK-BAXTER-2012BH004923

PATIENT
  Age: 78 Year
  Sex: Female
  Weight: 64 kg

DRUGS (17)
  1. NEUPOGEN [Suspect]
     Route: 058
     Dates: start: 20120214
  2. PANTOPRAZOLE [Concomitant]
     Indication: PRODUCT USED FOR UNKNOWN INDICATION
     Dosage: 40 MG, UNK
     Route: 048
     Dates: start: 20120105
  3. PREDNISONE [Suspect]
     Indication: B-CELL LYMPHOMA
     Dosage: 100 MG, UNK
     Route: 048
     Dates: start: 20120123
  4. DOXORUBICIN HCL [Suspect]
     Indication: B-CELL LYMPHOMA
     Dosage: 90 MG, UNK
     Route: 042
     Dates: start: 20120123
  5. DOXORUBICIN HCL [Suspect]
     Route: 042
     Dates: start: 20120213
  6. RITUXIMAB [Suspect]
     Indication: B-CELL LYMPHOMA
     Route: 042
     Dates: start: 20120123
  7. CYCLOPHOSPHAMIDE [Suspect]
     Indication: B-CELL LYMPHOMA
     Dosage: 350 MG, UNK
     Route: 042
     Dates: start: 20120123
  8. NEUPOGEN [Suspect]
     Indication: B-CELL LYMPHOMA
     Route: 058
     Dates: start: 20120128
  9. SIMVASTATIN [Concomitant]
     Indication: BLOOD CHOLESTEROL INCREASED
     Dosage: 40 MG, UNK
     Route: 048
     Dates: start: 20100917
  10. VENLAFAXINE [Concomitant]
     Indication: PRODUCT USED FOR UNKNOWN INDICATION
     Dosage: 75 MG, UNK
     Route: 048
     Dates: start: 20120105
  11. VINCRISTINE SULFATE [Suspect]
     Route: 042
     Dates: start: 20120213
  12. TENORETIC 100 [Concomitant]
     Indication: HYPERTENSION
     Dosage: UNK ABSENT, UNK
     Route: 048
  13. PREDNISONE [Suspect]
     Route: 048
     Dates: start: 20120213
  14. RITUXIMAB [Suspect]
     Route: 042
     Dates: start: 20120218
  15. MIRTAZAPINE [Concomitant]
     Indication: PRODUCT USED FOR UNKNOWN INDICATION
     Dosage: 15 MG, UNK
     Route: 048
     Dates: start: 20111219
  16. CYCLOPHOSPHAMIDE [Suspect]
     Dosage: 350 MG, UNK
     Route: 042
     Dates: start: 20120213
  17. VINCRISTINE SULFATE [Suspect]
     Indication: B-CELL LYMPHOMA
     Dosage: 42 MG, UNK
     Route: 042
     Dates: start: 20120123

REACTIONS (2)
  - WEIGHT DECREASED [None]
  - ORAL CANDIDIASIS [None]
